FAERS Safety Report 9616131 (Version 1)
Quarter: 2013Q4

REPORT INFORMATION
  Report Type: Spontaneous
  Country: US (occurrence: None)
  Receive Date: 20131010
  Receipt Date: 20131010
  Transmission Date: 20140711
  Serious: No
  Sender: FDA-Public Use
  Company Number: None

PATIENT
  Age: 73 Year
  Sex: Male
  Weight: 143.6 kg

DRUGS (2)
  1. VANCOMYCIN [Suspect]
     Indication: SEPSIS
     Route: 042
     Dates: start: 20130709, end: 20130709
  2. PIPERACILLIN/TAZOBACTAM [Suspect]
     Indication: SEPSIS
     Route: 042
     Dates: start: 20130709, end: 20130709

REACTIONS (4)
  - Hypotension [None]
  - Rash macular [None]
  - Pruritus [None]
  - Erythema [None]
